FAERS Safety Report 17926745 (Version 2)
Quarter: 2022Q1

REPORT INFORMATION
  Report Type: Report from Study
  Country: US (occurrence: US)
  Receive Date: 20200623
  Receipt Date: 20220330
  Transmission Date: 20220423
  Serious: Yes (Other)
  Sender: FDA-Public Use
  Company Number: US-TAKEDA-2020TUS027217

PATIENT
  Sex: Male
  Weight: 128 kg

DRUGS (1)
  1. IXAZOMIB [Suspect]
     Active Substance: IXAZOMIB
     Indication: Plasma cell myeloma
     Dosage: 4 MILLIGRAM
     Route: 065

REACTIONS (4)
  - Upper limb fracture [Unknown]
  - Plasma cell myeloma [Unknown]
  - Illness [Unknown]
  - Nasopharyngitis [Unknown]
